FAERS Safety Report 9060451 (Version 1)
Quarter: 2013Q1

REPORT INFORMATION
  Report Type: Spontaneous
  Country: US (occurrence: US)
  Receive Date: 20130212
  Receipt Date: 20130212
  Transmission Date: 20140127
  Serious: Yes (Other)
  Sender: FDA-Public Use
  Company Number: US-JNJFOC-20130115869

PATIENT
  Age: 5 Year
  Sex: Male

DRUGS (2)
  1. ZYRTEC [Suspect]
     Route: 065
  2. ZYRTEC [Suspect]
     Indication: SINUSITIS
     Route: 065

REACTIONS (2)
  - Hallucination, auditory [Unknown]
  - Drug administered to patient of inappropriate age [Unknown]
